FAERS Safety Report 5085537-7 (Version None)
Quarter: 2006Q3

REPORT INFORMATION
  Report Type: 
  Country: None (occurrence: None)
  Receive Date: 20060822
  Receipt Date: 20060815
  Transmission Date: 20061208
  Serious: Yes (Other)
  Sender: FDA-Public Use
  Company Number: PHEH2006US10489

PATIENT
  Age: 53 Year
  Sex: Male

DRUGS (3)
  1. TRILEPTAL [Suspect]
     Indication: BIPOLAR DISORDER
     Dosage: 300 MG QAM + 600 MG QHS
     Dates: start: 20060701, end: 20060701
  2. TRILEPTAL [Suspect]
     Dosage: 600 MG QAM + 300 MG QHS
     Dates: start: 20060701, end: 20060801
  3. TRILEPTAL [Suspect]
     Dosage: 300 MG, BID
     Dates: start: 20060801

REACTIONS (5)
  - ABNORMAL BEHAVIOUR [None]
  - ABNORMAL DREAMS [None]
  - ENURESIS [None]
  - HALLUCINATION, AUDITORY [None]
  - HEADACHE [None]
